FAERS Safety Report 11472410 (Version 2)
Quarter: 2015Q3

REPORT INFORMATION
  Report Type: Report from Study
  Country: MX (occurrence: MX)
  Receive Date: 20150908
  Receipt Date: 20150915
  Transmission Date: 20151125
  Serious: Yes (Death, Hospitalization, Other)
  Sender: FDA-Public Use
  Company Number: PHHY2015MX108530

PATIENT
  Age: 25 Year
  Sex: Male
  Weight: 64 kg

DRUGS (1)
  1. GLIVEC [Suspect]
     Active Substance: IMATINIB MESYLATE
     Indication: CHRONIC MYELOID LEUKAEMIA
     Dosage: 800 MG, QD
     Route: 065
     Dates: start: 20130117, end: 20150710

REACTIONS (9)
  - Death [Fatal]
  - Blast crisis in myelogenous leukaemia [Unknown]
  - Klebsiella bacteraemia [Unknown]
  - Treatment failure [Unknown]
  - Therapeutic response decreased [Unknown]
  - Enterococcal bacteraemia [Unknown]
  - Pyrexia [Unknown]
  - Febrile neutropenia [Unknown]
  - Neutropenic colitis [Unknown]

NARRATIVE: CASE EVENT DATE: 20150116
